FAERS Safety Report 12053931 (Version 1)
Quarter: 2016Q1

REPORT INFORMATION
  Report Type: Spontaneous
  Country: US (occurrence: US)
  Receive Date: 20160209
  Receipt Date: 20160209
  Transmission Date: 20160526
  Serious: No
  Sender: FDA-Public Use
  Company Number: US-SA-2016SA001211

PATIENT
  Age: 45 Year
  Sex: Male

DRUGS (3)
  1. PLEGRIDY [Concomitant]
     Active Substance: PEGINTERFERON BETA-1A
  2. PRALUENT [Suspect]
     Active Substance: ALIROCUMAB
     Indication: MULTIPLE SCLEROSIS
     Route: 058
  3. ALIROCUMAB PREFILLED PEN [Concomitant]
     Active Substance: ALIROCUMAB

REACTIONS (3)
  - Influenza like illness [Unknown]
  - Myalgia [Unknown]
  - Product use issue [Unknown]
